FAERS Safety Report 6035567-3 (Version None)
Quarter: 2009Q1

REPORT INFORMATION
  Report Type: 
  Country: None (occurrence: None)
  Receive Date: 20090113
  Receipt Date: 20090102
  Transmission Date: 20090719
  Serious: Yes (Hospitalization)
  Sender: FDA-Public Use
  Company Number: US-ROCHE-606087

PATIENT
  Sex: Female
  Weight: 76.2 kg

DRUGS (1)
  1. CAPECITABINE [Suspect]
     Indication: BREAST CANCER
     Dosage: DOSE REPORTED AS: 7 DOSE FORMS DAILY.
     Route: 048
     Dates: start: 20080626

REACTIONS (2)
  - CONFUSIONAL STATE [None]
  - METASTASES TO CENTRAL NERVOUS SYSTEM [None]
